FAERS Safety Report 7231974-1 (Version None)
Quarter: 2011Q1

REPORT INFORMATION
  Report Type: 
  Country: None (occurrence: None)
  Receive Date: 20110118
  Receipt Date: 20110107
  Transmission Date: 20110831
  Serious: Yes (Hospitalization, Other)
  Sender: FDA-Public Use
  Company Number: PHEH2007US04665

PATIENT
  Sex: Female
  Weight: 62.585 kg

DRUGS (94)
  1. NEXIUM [Concomitant]
     Dosage: 40 MG, BID
  2. PERCOCET [Concomitant]
     Dosage: 5-325 MG / PRN
  3. ZOFRAN [Concomitant]
     Dosage: 8 MG / PRN
  4. CEFTIN [Concomitant]
     Dosage: 500 MG, UNK
  5. CLEOCIN [Concomitant]
     Dosage: UNK
  6. DECADRON [Concomitant]
     Dosage: UNK
  7. ALBUTEROL [Concomitant]
  8. CARAFATE [Concomitant]
  9. ASPIRIN [Concomitant]
  10. COREG [Concomitant]
     Dosage: 3.125 MG, BID
  11. CYTOXAN [Concomitant]
     Indication: SYSTEMIC LUPUS ERYTHEMATOSUS
  12. PLAQUENIL [Concomitant]
     Dosage: 200 MG, BID
  13. FORTEO [Concomitant]
     Dosage: 750 MCG / DAILY AM
  14. CLINDAMYCIN [Concomitant]
     Dosage: 900 MG / Q8
  15. LEVAQUIN [Concomitant]
     Dosage: UNK
  16. ZYVOX [Concomitant]
     Dosage: UNK
  17. ANAGRELIDE HCL [Concomitant]
  18. ZOCOR [Concomitant]
     Dosage: UNK
  19. WELCHOL [Concomitant]
     Dosage: UNK
  20. COMPAZINE [Concomitant]
     Dosage: UNK
  21. MYCOSTATIN [Concomitant]
     Dosage: UNK
  22. NEPHRO-VITE [Concomitant]
  23. PRILOSEC [Concomitant]
  24. CALCIUM CITRATE [Concomitant]
  25. BELLERGAL [Concomitant]
  26. ENBREL [Concomitant]
  27. LYRICA [Concomitant]
     Dosage: UNK
     Dates: start: 20080101
  28. MEFOXIN [Concomitant]
     Dosage: UNK
  29. AMBIEN [Concomitant]
     Dosage: 12.5 / QHS
  30. METHOTREXATE [Concomitant]
  31. CIPROFLOXACIN [Concomitant]
     Dosage: 500 MG, UNK
  32. SALAGEN [Concomitant]
     Dosage: UNK
  33. BONIVA [Concomitant]
     Dosage: UNK
     Dates: start: 20070101
  34. TAGAMET [Concomitant]
     Dosage: UNK
  35. PRAVACHOL [Concomitant]
     Dosage: UNK
  36. DARBEPOETIN ALFA [Concomitant]
     Dosage: UNK
  37. SPECTAZOLE [Concomitant]
  38. BEROCCA                                 /SCH/ [Concomitant]
  39. FAMVIR                                  /NET/ [Concomitant]
  40. ZOMETA [Suspect]
     Indication: OSTEOPOROSIS
     Dosage: UNK
  41. ASACOL [Concomitant]
     Dosage: 1200 MG, TID
  42. FLEXERIL [Concomitant]
     Dosage: 5 MG
  43. AMANTADINE HCL [Concomitant]
  44. ACTOS [Concomitant]
     Dosage: 30 MG, QD
  45. EVISTA [Concomitant]
     Dosage: 60 MG, UNK
  46. BEXTRA [Concomitant]
     Dosage: UNK
     Dates: start: 20010101
  47. PRANDIN ^KUHN^ [Concomitant]
     Dosage: UNK
  48. DIFLUCAN [Concomitant]
     Dosage: 100 MG, UNK
  49. BACTROBAN                               /NET/ [Concomitant]
  50. AGRYLIN [Concomitant]
     Indication: THROMBOCYTOPENIA
     Dosage: 0.5 MG, BID
  51. ASPIRIN [Concomitant]
     Dosage: 325 MG, QD
  52. AREDIA [Suspect]
     Indication: OSTEOPOROSIS
     Dosage: UNK
     Route: 042
  53. PERIDEX [Concomitant]
  54. LASIX [Concomitant]
     Dosage: 20 MG
  55. INVANZ [Concomitant]
     Dosage: 1 GM / DAILY
  56. VANCOMYCIN [Concomitant]
     Dosage: UNK
  57. VICODIN [Concomitant]
     Dosage: UNK
  58. LIDODERM [Concomitant]
     Dosage: UNK
  59. GAMIMUNE [Concomitant]
     Dosage: UNK
  60. EXFORGE (VALSARTAN/AMLODIPINE BESILATE) [Concomitant]
     Dosage: 5/320 MG
  61. DARVOCET-N 100 [Concomitant]
  62. FLONASE [Concomitant]
  63. SUDAFED 12 HOUR [Concomitant]
  64. PROTONIX [Concomitant]
  65. VITAPLEX [Concomitant]
  66. LOMOTIL [Concomitant]
  67. NORVASK [Concomitant]
  68. ANZEMET [Concomitant]
  69. DONNATAL [Concomitant]
     Dosage: 1 TAB, QD
  70. ROCEPHIN [Concomitant]
     Dosage: 2 GM / QD
  71. IMURAN [Concomitant]
     Dosage: 50 MG, QD
  72. AUGMENTIN '125' [Concomitant]
     Dosage: UNK
  73. MEPRON [Concomitant]
  74. MOBIC [Concomitant]
     Dosage: 7.5 MG, PRN
  75. DILAUDID [Concomitant]
     Dosage: UNK
  76. SOL MEDROL [Concomitant]
     Dosage: UNK
  77. DIPRIVAN [Concomitant]
     Dosage: UNK
  78. PROVIGIL [Concomitant]
     Dosage: UNK
  79. ALLOPURINOL [Concomitant]
  80. DEMEROL [Concomitant]
  81. PREDNISONE [Concomitant]
     Dosage: 15 MG, QD
     Dates: start: 19860101
  82. CORTISONE [Concomitant]
  83. SINGULAIR [Concomitant]
     Dosage: 10 MG
  84. AVELOX [Concomitant]
     Dosage: UNK
  85. FLAGYL [Concomitant]
  86. CALCITONIN [Concomitant]
     Dosage: UNK
  87. KEFZOL [Concomitant]
     Dosage: UNK
  88. REGELAN [Concomitant]
     Dosage: UNK
  89. FLOVENT [Concomitant]
  90. KEFLEX [Concomitant]
  91. OXYCODONE [Concomitant]
  92. AVANDIA [Concomitant]
     Dosage: 2 MG, QD
  93. MINOCYCLINE HCL [Concomitant]
  94. PREVACID [Concomitant]

REACTIONS (100)
  - OSTEOMYELITIS [None]
  - OSTEOARTHRITIS [None]
  - GENERALISED OEDEMA [None]
  - TYMPANIC MEMBRANE DISORDER [None]
  - APPENDICITIS [None]
  - OSTEOPOROSIS [None]
  - WEGENER'S GRANULOMATOSIS [None]
  - ENCEPHALOPATHY [None]
  - JOINT DISLOCATION [None]
  - GASTRODUODENITIS [None]
  - BONE DISORDER [None]
  - OSTEOPENIA [None]
  - ABDOMINAL PAIN [None]
  - DIARRHOEA [None]
  - PERIODONTITIS [None]
  - POOR DENTAL CONDITION [None]
  - TOOTH ABSCESS [None]
  - ENTEROCOCCAL INFECTION [None]
  - BRONCHOPNEUMONIA [None]
  - HYPOAESTHESIA [None]
  - PERIODONTAL DISEASE [None]
  - OSTEITIS DEFORMANS [None]
  - SCLERODERMA [None]
  - ENTERITIS [None]
  - OSTEONECROSIS OF JAW [None]
  - GINGIVAL SWELLING [None]
  - RENAL FAILURE [None]
  - VASCULITIS [None]
  - SPINAL OSTEOARTHRITIS [None]
  - TOOTH DISORDER [None]
  - METASTATIC NEOPLASM [None]
  - OSTEOLYSIS [None]
  - MALOCCLUSION [None]
  - ASTHMA [None]
  - ESSENTIAL THROMBOCYTHAEMIA [None]
  - SENSORY LOSS [None]
  - THROMBOCYTOSIS [None]
  - TRAUMATIC RENAL INJURY [None]
  - SINUSITIS [None]
  - DYSPHAGIA [None]
  - GOITRE [None]
  - SEPSIS [None]
  - FATIGUE [None]
  - CELLULITIS [None]
  - FOOT FRACTURE [None]
  - TRANSIENT ISCHAEMIC ATTACK [None]
  - UTERINE ENLARGEMENT [None]
  - VITREOUS DETACHMENT [None]
  - STOMATITIS [None]
  - GINGIVAL INFECTION [None]
  - EXOSTOSIS [None]
  - COLITIS ULCERATIVE [None]
  - ANAEMIA [None]
  - UTERINE LEIOMYOMA [None]
  - FACIAL NEURALGIA [None]
  - ANGINA PECTORIS [None]
  - GASTROOESOPHAGEAL REFLUX DISEASE [None]
  - HYPOTENSION [None]
  - STRESS FRACTURE [None]
  - SWELLING FACE [None]
  - OSTEITIS [None]
  - SYSTEMIC LUPUS ERYTHEMATOSUS [None]
  - ADRENAL INSUFFICIENCY [None]
  - PELVIC FRACTURE [None]
  - GINGIVITIS [None]
  - HUMERUS FRACTURE [None]
  - LUMBAR SPINAL STENOSIS [None]
  - MIXED CONNECTIVE TISSUE DISEASE [None]
  - TELANGIECTASIA [None]
  - LUNG DISORDER [None]
  - MOUTH ULCERATION [None]
  - SWELLING [None]
  - OLIGURIA [None]
  - FIBROCYSTIC BREAST DISEASE [None]
  - BONE FRAGMENTATION [None]
  - WOUND INFECTION STAPHYLOCOCCAL [None]
  - TRICUSPID VALVE INCOMPETENCE [None]
  - HAEMANGIOMA [None]
  - DIVERTICULUM [None]
  - MYELOPROLIFERATIVE DISORDER [None]
  - CHRONIC OBSTRUCTIVE PULMONARY DISEASE [None]
  - DENTAL CARIES [None]
  - BONE EROSION [None]
  - PAIN [None]
  - GINGIVAL PAIN [None]
  - BONE PAIN [None]
  - PLATELET COUNT INCREASED [None]
  - HEPATIC STEATOSIS [None]
  - APTYALISM [None]
  - PLEURAL EFFUSION [None]
  - COR PULMONALE CHRONIC [None]
  - TOOTH INJURY [None]
  - ESCHERICHIA INFECTION [None]
  - OEDEMA PERIPHERAL [None]
  - PULPITIS DENTAL [None]
  - PAIN IN JAW [None]
  - HAEMORRHAGE INTRACRANIAL [None]
  - RECTAL HAEMORRHAGE [None]
  - ROTATOR CUFF SYNDROME [None]
  - HYPOGAMMAGLOBULINAEMIA [None]
